FAERS Safety Report 9935300 (Version 4)
Quarter: 2014Q2

REPORT INFORMATION
  Report Type: Spontaneous
  Country: BR (occurrence: BR)
  Receive Date: 20140228
  Receipt Date: 20140428
  Transmission Date: 20141212
  Serious: Yes (Other)
  Sender: FDA-Public Use
  Company Number: BR-ELI_LILLY_AND_COMPANY-BR201401008326

PATIENT
  Age: 60 Year
  Sex: Male

DRUGS (6)
  1. CIALIS [Suspect]
     Indication: ERECTILE DYSFUNCTION
     Dosage: 20 MG, OTHER
     Route: 048
  2. CIALIS [Suspect]
     Dosage: 5 MG, QD
     Route: 048
     Dates: start: 20140212, end: 20140215
  3. CIALIS [Suspect]
     Dosage: 20 MG, UNKNOWN
     Route: 065
  4. RENITEC                            /00574902/ [Concomitant]
     Indication: BLOOD PRESSURE
     Dosage: 20 MG, BID
     Route: 065
  5. METFORMINE [Concomitant]
     Indication: DIABETES MELLITUS
     Dosage: 850 MG, QD
     Route: 065
     Dates: start: 2012
  6. RIVOTRIL [Concomitant]
     Indication: SEDATIVE THERAPY
     Dosage: 4 GTT, QD
     Route: 065
     Dates: start: 2000

REACTIONS (4)
  - Meniere^s disease [Unknown]
  - Wrong technique in drug usage process [Unknown]
  - Intentional product misuse [Unknown]
  - Drug ineffective [Unknown]
